FAERS Safety Report 15142419 (Version 1)
Quarter: 2018Q3

REPORT INFORMATION
  Report Type: Spontaneous
  Country: IT (occurrence: IT)
  Receive Date: 20180713
  Receipt Date: 20180713
  Transmission Date: 20181010
  Serious: Yes (Hospitalization)
  Sender: FDA-Public Use
  Company Number: IT-PFIZER INC-2017350080

PATIENT
  Age: 18 Year
  Sex: Male

DRUGS (5)
  1. HALCION [Suspect]
     Active Substance: TRIAZOLAM
     Indication: MENTAL DISORDER
     Dosage: 0.25 MG, 1X/DAY
     Route: 048
     Dates: start: 20170101, end: 20170721
  2. MIRTAZAPINE. [Concomitant]
     Active Substance: MIRTAZAPINE
     Dosage: 0.5 DF, UNK
  3. VALDORM (FLURAZEPAM HYDROCHLORIDE) [Suspect]
     Active Substance: FLURAZEPAM HYDROCHLORIDE
     Indication: MENTAL DISORDER
     Dosage: 30 MG, 1X/DAY
     Route: 048
     Dates: start: 20170101, end: 20170721
  4. EN [Suspect]
     Active Substance: DELORAZEPAM
     Indication: MENTAL DISORDER
     Dosage: 40 GTT, 1X/DAY
     Route: 048
     Dates: start: 20170101, end: 20170721
  5. ENTUMIN [Concomitant]
     Active Substance: CLOTHIAPINE
     Dosage: 8 GTT, UNK

REACTIONS (2)
  - Sinus tachycardia [Unknown]
  - Sopor [Unknown]

NARRATIVE: CASE EVENT DATE: 20170721
